FAERS Safety Report 8683670 (Version 2)
Quarter: 2012Q4

REPORT INFORMATION
  Report Type: Report from Study
  Country: FR (occurrence: FR)
  Receive Date: 20120726
  Receipt Date: 20120828
  Transmission Date: 20130627
  Serious: Yes (Hospitalization, Other)
  Sender: FDA-Public Use
  Company Number: FR-AMGEN-FRACT2012023044

PATIENT
  Age: 65 Year
  Sex: Female
  Weight: 45 kg

DRUGS (22)
  1. PANITUMUMAB [Suspect]
     Indication: GASTROOESOPHAGEAL CANCER
     Dosage: 270 mg, UNK
     Route: 042
     Dates: start: 20120215
  2. OXALIPLATIN [Concomitant]
     Dosage: 127.5 mg, UNK
     Route: 042
     Dates: start: 20120215
  3. FLUOROURACIL [Concomitant]
     Dosage: UNK
     Route: 042
     Dates: start: 20120215
  4. LEVOFOLINATE CALCIUM [Concomitant]
     Dosage: 290 mg, UNK
     Route: 042
     Dates: start: 20120215
  5. OMEPRAZOLE [Concomitant]
     Indication: GASTROOESOPHAGEAL REFLUX DISEASE
     Dosage: UNK
     Route: 048
     Dates: start: 20120301
  6. ERYFLUID [Concomitant]
     Indication: ACNE
     Dosage: UNK
     Route: 061
     Dates: start: 20120301
  7. TOLEXINE [Concomitant]
     Indication: GENITAL INFECTION
     Dosage: 100 mg, UNK
     Route: 048
     Dates: start: 20120216
  8. FORLAX [Concomitant]
     Indication: CONSTIPATION
     Dosage: UNK
     Dates: start: 20120216
  9. DUROGESIC [Concomitant]
     Indication: PAIN IN EXTREMITY
     Dosage: UNK
     Route: 062
     Dates: start: 20120314
  10. PARACETAMOL [Concomitant]
     Indication: PAIN IN EXTREMITY
     Dosage: UNK
     Route: 048
     Dates: start: 20120314
  11. SOLUMEDROL [Concomitant]
     Indication: PAIN IN EXTREMITY
     Dosage: UNK
     Route: 042
     Dates: start: 20120314
  12. TRIDESONIT [Concomitant]
     Indication: ACNE
     Dosage: UNK
     Dates: start: 20120315
  13. OLIMEL [Concomitant]
     Indication: WEIGHT DECREASED
     Dosage: UNK
     Route: 042
     Dates: start: 20120322
  14. ZOPHREN [Concomitant]
     Dosage: 8 mg, qd
     Route: 042
     Dates: start: 20120215
  15. SOLUPRED [Concomitant]
     Dosage: 20 mg, UNK
     Dates: start: 20120215, end: 20120219
  16. LOVENOX [Concomitant]
  17. VOGALENE LYOC [Concomitant]
     Dosage: 7.5 mg, UNK
     Route: 048
     Dates: start: 20120215
  18. DEXERYL [Concomitant]
     Dosage: UNK
     Dates: start: 20120216
  19. EMLA [Concomitant]
  20. LAMALINE [Concomitant]
     Dosage: UNK
     Dates: start: 20120314
  21. MYCOSTATIN [Concomitant]
     Dosage: UNK
     Dates: start: 20120322
  22. BICARBONATE [Concomitant]
     Dosage: UNK
     Dates: start: 20120322

REACTIONS (6)
  - Dehydration [Recovered/Resolved]
  - Cholecystitis [Recovered/Resolved]
  - Chest pain [Not Recovered/Not Resolved]
  - Rash [Not Recovered/Not Resolved]
  - Nausea [Recovered/Resolved]
  - Vomiting [Recovered/Resolved]
